FAERS Safety Report 9162282 (Version 3)
Quarter: 2013Q4

REPORT INFORMATION
  Report Type: Spontaneous
  Country: ES (occurrence: None)
  Receive Date: 20130215
  Receipt Date: 20131118
  Transmission Date: 20140711
  Serious: Yes (Hospitalization)
  Sender: FDA-Public Use
  Company Number: SYM-2013-00480

PATIENT
  Age: 78 Year
  Sex: Male

DRUGS (7)
  1. 5-FU [Suspect]
     Indication: COLORECTAL CANCER METASTATIC
     Dosage: EVERY OTHER WEEK, INTRAVENOUS BOLUS
     Route: 040
     Dates: start: 20121212
  2. AFLIBERCEPT [Suspect]
     Indication: COLORECTAL CANCER METASTATIC
     Dosage: EVERY OTHER WEEK, INTRAVENOUS DRIP
     Route: 041
     Dates: start: 20121212, end: 20121212
  3. IRINOTECAN [Suspect]
     Indication: COLORECTAL CANCER METASTATIC
     Dosage: EVERY OTHER WEEK, INTRAVENOUS DRIP
     Route: 041
     Dates: start: 20121212, end: 20121212
  4. LEUCOVORIN [Suspect]
     Indication: COLORECTAL CANCER METASTATIC
     Dosage: EVERY OTHER WEEK, INTRAVENOUS DRIP
     Route: 041
     Dates: start: 20121212, end: 20121212
  5. FERROUS SULFATE (FERROUS SULFATE) (FERROUS SULFATE) [Concomitant]
  6. ADIRO (ACETYLSALICYLIC ACID (ACETYLSALICYLIC ACID) [Concomitant]
  7. OMEPRAZOLE (OMEPRAZOLE) (OMEPRAZOLE) [Concomitant]

REACTIONS (2)
  - Pyrexia [None]
  - Neutropenia [None]
